FAERS Safety Report 4903477-8 (Version None)
Quarter: 2006Q1

REPORT INFORMATION
  Report Type: 
  Country: None (occurrence: None)
  Receive Date: 20060206
  Receipt Date: 20060206
  Transmission Date: 20060701
  Serious: Yes (Hospitalization)
  Sender: FDA-Public Use
  Company Number: None

PATIENT
  Age: 75 Year
  Sex: Male
  Weight: 72 kg

DRUGS (1)
  1. BUPIVACAINE [Suspect]
     Indication: ANAESTHESIA
     Dosage: 6 CC/H EPIDURAL
     Route: 008
     Dates: start: 20051118

REACTIONS (1)
  - HYPOTENSION [None]
